FAERS Safety Report 18338069 (Version 1)
Quarter: 2020Q4

REPORT INFORMATION
  Report Type: Spontaneous
  Country: US (occurrence: US)
  Receive Date: 20201002
  Receipt Date: 20201002
  Transmission Date: 20210113
  Serious: No
  Sender: FDA-Public Use
  Company Number: US-TEVA-2020-US-1834938

PATIENT

DRUGS (1)
  1. PENICILLIN VK 250 MG TABLET [Suspect]
     Active Substance: PENICILLIN V POTASSIUM
     Route: 065

REACTIONS (1)
  - Drug hypersensitivity [Unknown]
